FAERS Safety Report 6752480-4 (Version None)
Quarter: 2010Q2

REPORT INFORMATION
  Report Type: 
  Country: None (occurrence: None)
  Receive Date: 20100601
  Receipt Date: 20100601
  Transmission Date: 20101027
  Serious: Yes (Hospitalization)
  Sender: FDA-Public Use
  Company Number: None

PATIENT
  Sex: Female
  Weight: 81.6475 kg

DRUGS (2)
  1. PRIALT [Suspect]
     Indication: BACK PAIN
     Dosage: ? ONCE IT
     Route: 037
     Dates: start: 20080701, end: 20080701
  2. INTRATHECAL PUMP [Concomitant]

REACTIONS (1)
  - PARAPLEGIA [None]
